FAERS Safety Report 11981434 (Version 2)
Quarter: 2016Q1

REPORT INFORMATION
  Report Type: Spontaneous
  Country: GB (occurrence: GB)
  Receive Date: 20160130
  Receipt Date: 20160308
  Transmission Date: 20160526
  Serious: Yes (Other)
  Sender: FDA-Public Use
  Company Number: GB-ACCORD-037320

PATIENT
  Sex: Male

DRUGS (3)
  1. PARACETAMOL [Concomitant]
     Active Substance: ACETAMINOPHEN
  2. DICLOFENAC [Concomitant]
     Active Substance: DICLOFENAC
  3. TRAMADOL/TRAMADOL HYDROCHLORIDE [Suspect]
     Active Substance: TRAMADOL HYDROCHLORIDE
     Indication: NEPHROLITHIASIS
     Dates: start: 20080305

REACTIONS (4)
  - Muscle twitching [Unknown]
  - Tremor [Unknown]
  - Dyskinesia [Unknown]
  - Movement disorder [Unknown]
